FAERS Safety Report 6035568-5 (Version None)
Quarter: 2009Q1

REPORT INFORMATION
  Report Type: 
  Country: None (occurrence: None)
  Receive Date: 20090113
  Receipt Date: 20090102
  Transmission Date: 20090719
  Serious: Yes (Hospitalization, Other)
  Sender: FDA-Public Use
  Company Number: US-ROCHE-450541

PATIENT
  Sex: Male
  Weight: 75.3 kg

DRUGS (4)
  1. ACCUTANE [Suspect]
     Route: 048
     Dates: start: 20010517, end: 20010520
  2. ACCUTANE [Suspect]
     Dosage: STRENGTH REPORTED AS 40 MG AND 20 MG.
     Route: 048
     Dates: start: 20010720, end: 20010920
  3. ACCUTANE [Suspect]
     Route: 048
     Dates: start: 20020812, end: 20021020
  4. ACCUTANE [Suspect]
     Route: 048
     Dates: start: 20021021, end: 20021205

REACTIONS (7)
  - AFFECTIVE DISORDER [None]
  - ANXIETY [None]
  - COLITIS ULCERATIVE [None]
  - CROHN'S DISEASE [None]
  - INFLAMMATORY BOWEL DISEASE [None]
  - OBSESSIVE-COMPULSIVE DISORDER [None]
  - PROCTITIS [None]
